FAERS Safety Report 8173489-2 (Version None)
Quarter: 2012Q1

REPORT INFORMATION
  Report Type: 
  Country: None (occurrence: None)
  Receive Date: 20120228
  Receipt Date: 20120213
  Transmission Date: 20120608
  Serious: Yes (Other)
  Sender: FDA-Public Use
  Company Number: DSA_55153_2012

PATIENT
  Age: 39 Year
  Sex: Male

DRUGS (7)
  1. ZYPREXA [Concomitant]
  2. PAXIL [Suspect]
     Indication: DEPRESSION
     Dosage: (40 MG Q1H ORAL)
     Route: 048
     Dates: start: 19950101
  3. LAMICTAL [Suspect]
     Indication: TEMPORAL LOBE EPILEPSY
     Dosage: (DF ORAL)
     Route: 048
     Dates: start: 19980101
  4. BUSPAR [Suspect]
     Indication: PRODUCT USED FOR UNKNOWN INDICATION
     Dosage: (DF)
  5. WELLBUTRIN [Suspect]
     Indication: DEPRESSION
     Dosage: (DF ORAL)
     Route: 048
     Dates: start: 19960101, end: 20000101
  6. TOPAMAX [Concomitant]
  7. ROPINIROLE HYDROCHLORIDE (REQUIP) [Suspect]
     Indication: RESTLESS LEGS SYNDROME
     Dosage: (3 MG QD ORAL)
     Route: 048
     Dates: start: 20080901, end: 20081001

REACTIONS (8)
  - SEXUAL DYSFUNCTION [None]
  - NERVOUSNESS [None]
  - DRUG INTERACTION [None]
  - INSOMNIA [None]
  - DRUG DEPENDENCE [None]
  - SLEEP TERROR [None]
  - DRUG INEFFECTIVE [None]
  - DRUG INTOLERANCE [None]
